FAERS Safety Report 8964748 (Version 1)
Quarter: 2012Q4

REPORT INFORMATION
  Report Type: 
  Country: US (occurrence: US)
  Receive Date: 20121213
  Receipt Date: 20121213
  Transmission Date: 20130627
  Serious: Yes (Hospitalization, Disabling, Other)
  Sender: FDA-Public Use
  Company Number: US-009507513-1212USA002308

PATIENT

DRUGS (2)
  1. TEMOZOLOMIDE [Suspect]
     Indication: GLIOBLASTOMA MULTIFORME
     Dosage: 75 up to 250 mg/m2, Once
     Route: 013
     Dates: start: 20111208, end: 20111208
  2. MANNITOL [Suspect]
     Indication: INFUSION
     Dosage: UNK, Once
     Route: 013
     Dates: start: 20111208, end: 20111208

REACTIONS (4)
  - Cerebrovascular accident [Not Recovered/Not Resolved]
  - Procedural complication [Not Recovered/Not Resolved]
  - Arterial injury [Not Recovered/Not Resolved]
  - Arterial therapeutic procedure [Not Recovered/Not Resolved]
